FAERS Safety Report 9588655 (Version 1)
Quarter: 2013Q4

REPORT INFORMATION
  Report Type: Spontaneous
  Country: US (occurrence: US)
  Receive Date: 20131003
  Receipt Date: 20131003
  Transmission Date: 20140711
  Serious: No
  Sender: FDA-Public Use
  Company Number: US-AMGEN-USASP2012066017

PATIENT
  Age: 60 Year
  Sex: Female
  Weight: 63.49 kg

DRUGS (7)
  1. ENBREL [Suspect]
     Indication: PRODUCT USED FOR UNKNOWN INDICATION
     Dosage: 50 MG, QWK
     Route: 058
  2. RESTASIS [Concomitant]
     Dosage: 0.05%
  3. PREDNISONE [Concomitant]
     Dosage: 1 MG, UNK
  4. RECLAST [Concomitant]
     Dosage: 5/100ML
  5. VENLAFAXINE [Concomitant]
     Dosage: 37.5 MG, UNK
  6. TUMS                               /00193601/ [Concomitant]
     Dosage: 500 MG, UNK
  7. VITAMIN D                          /00107901/ [Concomitant]
     Dosage: 1000 UNIT, UNK

REACTIONS (1)
  - Injection site extravasation [Unknown]
